FAERS Safety Report 5305753-6 (Version None)
Quarter: 2007Q2

REPORT INFORMATION
  Report Type: 
  Country: None (occurrence: None)
  Receive Date: 20070416
  Receipt Date: 20070402
  Transmission Date: 20071010
  Serious: Yes (Hospitalization, Other)
  Sender: FDA-Public Use
  Company Number: 16246

PATIENT
  Age: 67 Year
  Sex: Female

DRUGS (1)
  1. ACYCLOVIR [Suspect]
     Indication: FACIAL PALSY
     Dosage: 200 MG OTH

REACTIONS (9)
  - AFFECT LABILITY [None]
  - BRONCHOPNEUMONIA [None]
  - CEREBELLAR HAEMATOMA [None]
  - CEREBRAL ISCHAEMIA [None]
  - DEPRESSED LEVEL OF CONSCIOUSNESS [None]
  - GAIT DISTURBANCE [None]
  - PARALYSIS [None]
  - SOMNOLENCE [None]
  - SUBDURAL HAEMATOMA [None]
